FAERS Safety Report 11270988 (Version 1)
Quarter: 2015Q3

REPORT INFORMATION
  Report Type: Spontaneous
  Country: AU (occurrence: AU)
  Receive Date: 20150714
  Receipt Date: 20150714
  Transmission Date: 20151125
  Serious: Yes (Other)
  Sender: FDA-Public Use
  Company Number: AU-MYLANLABS-2015M1023002

PATIENT

DRUGS (2)
  1. FLUOROURACIL. [Suspect]
     Active Substance: FLUOROURACIL
     Indication: OCULAR NEOPLASM
     Dosage: 1%, 4 TIMES A DAY FOR 2 WEEKS
     Route: 061
  2. FLUOROURACIL. [Suspect]
     Active Substance: FLUOROURACIL
     Indication: OFF LABEL USE

REACTIONS (1)
  - Ulcerative keratitis [Unknown]
